FAERS Safety Report 5632943-5 (Version None)
Quarter: 2008Q1

REPORT INFORMATION
  Report Type: 
  Country: None (occurrence: None)
  Receive Date: 20080221
  Receipt Date: 20080211
  Transmission Date: 20080703
  Serious: Yes (Hospitalization)
  Sender: FDA-Public Use
  Company Number: BE-AMGEN-US265462

PATIENT
  Age: 57 Year
  Sex: Female

DRUGS (1)
  1. ENBREL [Suspect]
     Indication: RHEUMATOID ARTHRITIS
     Route: 058

REACTIONS (5)
  - PERICARDIAL EFFUSION [None]
  - PERICARDITIS INFECTIVE [None]
  - PNEUMOCOCCAL BACTERAEMIA [None]
  - RENAL FAILURE ACUTE [None]
  - TACHYCARDIA [None]
